FAERS Safety Report 10405067 (Version 1)
Quarter: 2014Q3

REPORT INFORMATION
  Report Type: Spontaneous
  Country: US (occurrence: None)
  Receive Date: 20140819
  Receipt Date: 20140819
  Transmission Date: 20150326
  Serious: Yes (Life-Threatening, Disabling)
  Sender: FDA-Public Use
  Company Number: None

PATIENT
  Age: 66 Year
  Sex: Male
  Weight: 88.45 kg

DRUGS (20)
  1. WHOLE FOOD VITAMIN C + MULTI-VITAMIN/MINERAL [Concomitant]
  2. GRAPE SEED EXTRACT [Concomitant]
     Active Substance: GRAPE SEED EXTRACT
  3. NIACIN. [Concomitant]
     Active Substance: NIACIN
  4. TEA [Concomitant]
     Active Substance: TEA LEAF
  5. ASPIRIN. [Concomitant]
     Active Substance: ASPIRIN
  6. GINGER. [Concomitant]
     Active Substance: GINGER
  7. ATENLOL [Concomitant]
  8. VITAMIN K2 [Concomitant]
     Active Substance: MENAQUINONE 6
  9. POMEGRANTE [Concomitant]
  10. MAGNESIUM [Concomitant]
     Active Substance: MAGNESIUM
  11. CHOLINE [Concomitant]
     Active Substance: CHOLINE
  12. GARLIC. [Concomitant]
     Active Substance: GARLIC
  13. NATTOKANASE [Concomitant]
  14. ALOE VERA [Concomitant]
     Active Substance: ALOE VERA LEAF
  15. SOVALDI [Suspect]
     Active Substance: SOFOSBUVIR
     Indication: HEPATITIS C
     Dosage: 1 PILL EACH ONE DAY ONCE DAILY MOUTH IN MORNING WITH MEAL
     Route: 048
     Dates: start: 20140509, end: 20140728
  16. VALIUM [Concomitant]
     Active Substance: DIAZEPAM
  17. FISH OIL [Concomitant]
     Active Substance: FISH OIL
  18. CO-ENYME Q10 [Concomitant]
  19. OLYSIO [Suspect]
     Active Substance: SIMEPREVIR
     Dosage: 1 PILL EACH ONCE DAILY IN MORNING WITH MEAL
  20. VITAMIN D3 [Concomitant]
     Active Substance: CHOLECALCIFEROL

REACTIONS (18)
  - Ocular discomfort [None]
  - Headache [None]
  - Syncope [None]
  - Arteritis [None]
  - Burning sensation [None]
  - Dysstasia [None]
  - Discomfort [None]
  - Cardiac disorder [None]
  - Fatigue [None]
  - Hypoaesthesia [None]
  - Cerebral artery occlusion [None]
  - Dizziness [None]
  - Balance disorder [None]
  - Asthenia [None]
  - Head discomfort [None]
  - Hearing impaired [None]
  - Nervous system disorder [None]
  - Condition aggravated [None]

NARRATIVE: CASE EVENT DATE: 20140728
